FAERS Safety Report 24172323 (Version 1)
Quarter: 2024Q3

REPORT INFORMATION
  Report Type: Spontaneous
  Country: US (occurrence: None)
  Receive Date: 20240804
  Receipt Date: 20240804
  Transmission Date: 20241017
  Serious: Yes (Life-Threatening)
  Sender: Public
  Company Number: None

PATIENT
  Age: 62 Year
  Sex: Male
  Weight: 89.1 kg

DRUGS (1)
  1. TIRZEPATIDE [Suspect]
     Active Substance: TIRZEPATIDE
     Indication: Type 2 diabetes mellitus
     Dosage: OTHER FREQUENCY : WEEKLY;?
     Route: 058
     Dates: start: 20221106, end: 20240503

REACTIONS (4)
  - Pancreatitis [None]
  - Acute cholecystitis necrotic [None]
  - B-cell lymphoma [None]
  - CD20 antigen positive [None]

NARRATIVE: CASE EVENT DATE: 20240506
